FAERS Safety Report 25356619 (Version 1)
Quarter: 2025Q2

REPORT INFORMATION
  Report Type: Spontaneous
  Country: US (occurrence: US)
  Receive Date: 20250526
  Receipt Date: 20250526
  Transmission Date: 20250716
  Serious: No
  Sender: TERSERA THERAPEUTICS
  Company Number: US-TERSERA THERAPEUTICS LLC-2024TRS003786

PATIENT

DRUGS (8)
  1. GOSERELIN [Suspect]
     Active Substance: GOSERELIN
     Indication: Breast cancer female
     Route: 058
  2. ZOLADEX [Suspect]
     Active Substance: GOSERELIN ACETATE
     Indication: Breast cancer female
     Route: 065
  3. IBRANCE [Suspect]
     Active Substance: PALBOCICLIB
     Indication: Breast cancer female
     Route: 065
     Dates: start: 20240304
  4. IBRANCE [Suspect]
     Active Substance: PALBOCICLIB
     Route: 065
     Dates: start: 202403
  5. IBRANCE [Suspect]
     Active Substance: PALBOCICLIB
     Route: 065
     Dates: end: 20240822
  6. IBRANCE [Suspect]
     Active Substance: PALBOCICLIB
     Route: 048
     Dates: start: 20240913
  7. LETROZOLE [Concomitant]
     Active Substance: LETROZOLE
     Indication: Product used for unknown indication
     Route: 048
     Dates: start: 20240304, end: 20240617
  8. LETROZOLE [Concomitant]
     Active Substance: LETROZOLE
     Route: 048
     Dates: start: 20240626

REACTIONS (9)
  - Sleep disorder [Unknown]
  - Feeling abnormal [Unknown]
  - Night sweats [Unknown]
  - Taste disorder [Unknown]
  - Chills [Unknown]
  - Musculoskeletal stiffness [Not Recovered/Not Resolved]
  - Hot flush [Unknown]
  - Nervousness [Unknown]
  - Dizziness postural [Unknown]

NARRATIVE: CASE EVENT DATE: 20240901
